FAERS Safety Report 15337415 (Version 1)
Quarter: 2018Q3

REPORT INFORMATION
  Report Type: Spontaneous
  Country: GB (occurrence: GB)
  Receive Date: 20180831
  Receipt Date: 20180831
  Transmission Date: 20181010
  Serious: Yes (Other)
  Sender: FDA-Public Use
  Company Number: GB-TEVA-2018-GB-949171

PATIENT
  Age: 78 Year
  Sex: Female
  Weight: 52.61 kg

DRUGS (3)
  1. AMLODIPINE [Suspect]
     Active Substance: AMLODIPINE BESYLATE
     Indication: HYPERTENSION
     Route: 048
     Dates: start: 201804, end: 201807
  2. LEVOTHYROXINE. [Concomitant]
     Active Substance: LEVOTHYROXINE
     Route: 065
  3. STATINS [Concomitant]
     Active Substance: UNSPECIFIED INGREDIENT
     Route: 065

REACTIONS (5)
  - Insomnia [Unknown]
  - Temporal arteritis [Unknown]
  - Arthralgia [Unknown]
  - Pollakiuria [Unknown]
  - Tinnitus [Unknown]

NARRATIVE: CASE EVENT DATE: 20180604
